FAERS Safety Report 16681494 (Version 1)
Quarter: 2019Q3

REPORT INFORMATION
  Report Type: Spontaneous
  Country: AU (occurrence: AU)
  Receive Date: 20190808
  Receipt Date: 20190808
  Transmission Date: 20191004
  Serious: Yes (Hospitalization, Other)
  Sender: FDA-Public Use
  Company Number: AU-APOTEX-2019AP019739

PATIENT
  Age: 62 Year
  Sex: Female

DRUGS (3)
  1. MIRTAZAPINE. [Suspect]
     Active Substance: MIRTAZAPINE
     Indication: MAJOR DEPRESSION
     Dosage: 45 MG, AT NIGHT
     Route: 065
  2. DULOXETINE. [Suspect]
     Active Substance: DULOXETINE
     Indication: MAJOR DEPRESSION
     Dosage: 30 MG, IN THE MORNING
     Route: 065
  3. OLANZAPINE. [Suspect]
     Active Substance: OLANZAPINE
     Indication: MAJOR DEPRESSION
     Dosage: 5 MG, AT NIGHT
     Route: 065

REACTIONS (2)
  - Therapeutic product effect incomplete [Unknown]
  - Arrhythmia [Unknown]
